FAERS Safety Report 18561372 (Version 1)
Quarter: 2020Q4

REPORT INFORMATION
  Report Type: Spontaneous
  Country: FR (occurrence: FR)
  Receive Date: 20201130
  Receipt Date: 20201130
  Transmission Date: 20210114
  Serious: Yes (Hospitalization)
  Sender: FDA-Public Use
  Company Number: FR-ALLERGAN-2046312US

PATIENT
  Sex: Female

DRUGS (2)
  1. CITALOPRAM HYDROBROMIDE - BP [Suspect]
     Active Substance: CITALOPRAM HYDROBROMIDE
     Indication: INTENTIONAL OVERDOSE
     Dosage: 140 MG, OVERDOSE:140MG
     Route: 048
     Dates: start: 20201014, end: 20201014
  2. SERESTA [Suspect]
     Active Substance: OXAZEPAM
     Indication: INTENTIONAL OVERDOSE
     Dosage: 250 MG, OVERDOSE:250MG
     Route: 048
     Dates: start: 20201014, end: 20201014

REACTIONS (7)
  - Hypokalaemia [Recovered/Resolved]
  - Respiratory alkalosis [Recovered/Resolved]
  - Poisoning deliberate [Recovered/Resolved]
  - Tachycardia [Recovered/Resolved]
  - Hypertension [Recovered/Resolved]
  - Coma [Recovered/Resolved]
  - Respiratory failure [Recovered/Resolved]

NARRATIVE: CASE EVENT DATE: 20201014
